FAERS Safety Report 7939911-9 (Version None)
Quarter: 2011Q4

REPORT INFORMATION
  Report Type: 
  Country: None (occurrence: None)
  Receive Date: 20111125
  Receipt Date: 20110915
  Transmission Date: 20120403
  Serious: No
  Sender: FDA-Public Use
  Company Number: US-BAYER-2011-103719

PATIENT
  Age: 53 Year
  Sex: Female
  Weight: 73 kg

DRUGS (4)
  1. ALEVE (CAPLET) [Suspect]
     Indication: ARTHRITIS
     Dosage: 7 DF, UNK
  2. MULTI-VITAMINS [Concomitant]
  3. ALEVE (CAPLET) [Suspect]
     Indication: MUSCLE STRAIN
     Dosage: 1 DF, QD
  4. PRAVASTATIN [Concomitant]

REACTIONS (1)
  - NO ADVERSE EVENT [None]
